FAERS Safety Report 8714296 (Version 2)
Quarter: 2014Q1

REPORT INFORMATION
  Report Type: Spontaneous
  Country: US (occurrence: US)
  Receive Date: 20120809
  Receipt Date: 20140221
  Transmission Date: 20141002
  Serious: No
  Sender: FDA-Public Use
  Company Number: US-BIOGENIDEC-2012BI029071

PATIENT
  Sex: Female

DRUGS (2)
  1. TYSABRI [Suspect]
     Indication: MULTIPLE SCLEROSIS
     Route: 042
     Dates: start: 20081201, end: 20111104
  2. AVONEX [Concomitant]
     Indication: MULTIPLE SCLEROSIS
     Route: 030
     Dates: start: 20030610, end: 2005

REACTIONS (12)
  - Emotional disorder [Unknown]
  - Memory impairment [Unknown]
  - Incontinence [Unknown]
  - Musculoskeletal pain [Unknown]
  - Depression [Unknown]
  - Psychiatric symptom [Unknown]
  - Fall [Recovered/Resolved]
  - Balance disorder [Unknown]
  - Pain [Unknown]
  - Confusional state [Not Recovered/Not Resolved]
  - Mobility decreased [Unknown]
  - Central venous catheterisation [Unknown]
